FAERS Safety Report 9248738 (Version 1)
Quarter: 2013Q1

REPORT INFORMATION
  Report Type: Spontaneous
  Country: US (occurrence: None)
  Receive Date: 20130305
  Receipt Date: 20130305
  Transmission Date: 20140127
  Serious: Yes (Disabling)
  Sender: FDA-Public Use
  Company Number: 163-21880-12091900

PATIENT
  Sex: Male
  Weight: 84.37 kg

DRUGS (9)
  1. REVLIMID [Suspect]
     Indication: PLASMA CELL MYELOMA
     Dosage: 25 MG, 1 IN 1 D, PO
     Route: 048
     Dates: start: 201201
  2. ACYCLOVIR (ACICLOVIR) (UNKNOWN) [Concomitant]
  3. ADVIL (IBUPROFEN) (UNKNOWN) [Concomitant]
  4. AMLODIPINE/BENAZEPRIL (AMLODIPINE BESYLATE W/BENAZEPRIL HYDROCHLOR.) (UNKNOWN) [Concomitant]
  5. LYRICA (PREGABALIN) (UNKNOWN) [Concomitant]
  6. GLYBURIDE (GLIBENCLAMIDE) (UNKNOWN) [Concomitant]
  7. MULTIVITAMINS (MULTIVITAMINS) (UNKNOWN) [Concomitant]
  8. SIMVASTATIN [Concomitant]
  9. BACTRIM (BACTRIM) (UNKNOWN) [Concomitant]

REACTIONS (2)
  - Local swelling [None]
  - Diarrhoea [None]
